FAERS Safety Report 6983628-4 (Version None)
Quarter: 2010Q3

REPORT INFORMATION
  Report Type: 
  Country: None (occurrence: None)
  Receive Date: 20100914
  Receipt Date: 20081002
  Transmission Date: 20110219
  Serious: No
  Sender: FDA-Public Use
  Company Number: US-WYE-H06250808

PATIENT
  Sex: Female

DRUGS (1)
  1. ADVIL LIQUI-GELS [Suspect]
     Indication: ARTHRALGIA
     Dosage: 3 TABLETS DAILY (AS RECOMMENDED BY HCP)
     Route: 048

REACTIONS (1)
  - INITIAL INSOMNIA [None]
